FAERS Safety Report 7681641-5 (Version None)
Quarter: 2011Q3

REPORT INFORMATION
  Report Type: 
  Country: None (occurrence: None)
  Receive Date: 20110812
  Receipt Date: 20110808
  Transmission Date: 20111222
  Serious: Yes (Hospitalization)
  Sender: FDA-Public Use
  Company Number: PHHY2011JP72057

PATIENT
  Sex: Male

DRUGS (33)
  1. CELLCEPT [Concomitant]
     Dosage: 1000 MG, UNK
     Route: 048
  2. FLURBIPROFEN [Concomitant]
     Dosage: 50 MG, UNK
     Route: 042
  3. LEVOTHYROXINE SODIUM [Concomitant]
     Dosage: 50 UG, UNK
     Route: 048
  4. LEVOTHYROXINE SODIUM [Concomitant]
     Dosage: 25 UG, UNK
     Route: 048
  5. PREDNISOLONE [Suspect]
     Dosage: 15 MG, UNK
     Route: 042
     Dates: start: 20100717, end: 20100717
  6. LASIX [Concomitant]
     Indication: POLYURIA
     Dosage: 5 MG, UNK
     Route: 042
     Dates: start: 20100715, end: 20100716
  7. FLURBIPROFEN [Concomitant]
     Dosage: 100 MG, UNK
     Route: 042
  8. CLOSTRIDIUM BUTYRICUM [Concomitant]
     Indication: DISBACTERIOSIS
     Dosage: 2 DF, UNK
     Route: 048
     Dates: start: 20100826
  9. PREDNISOLONE [Concomitant]
     Dosage: 5 MG, UNK
     Route: 048
  10. CEFAZOLIN [Concomitant]
     Indication: INFECTION PROPHYLAXIS
     Dosage: 600 MG, UNK
     Route: 042
     Dates: start: 20100714, end: 20100720
  11. LEVOTHYROXINE SODIUM [Concomitant]
     Indication: THYROIDITIS CHRONIC
     Dosage: 70 UG, UNK
     Route: 048
     Dates: start: 20100714
  12. SIMULECT [Suspect]
     Dosage: 10 MG, ONCE/SINGLE
     Route: 042
     Dates: start: 20100714, end: 20100714
  13. SIMULECT [Suspect]
     Dosage: 10 MG, ONCE/SINGLE
     Route: 042
     Dates: start: 20100718, end: 20100718
  14. PREDNISOLONE [Concomitant]
     Indication: RENAL TRANSPLANT
     Dosage: 20 MG, UNK
     Route: 048
     Dates: start: 20100717
  15. PREDNISOLONE [Concomitant]
     Dosage: 30 MG, UNK
     Route: 048
  16. OMEPRAZOLE [Concomitant]
     Dosage: 20 MG, UNK
     Route: 042
  17. ADOFEED [Concomitant]
     Indication: BACK PAIN
     Dosage: 40 MG, UNK
     Dates: start: 20100803, end: 20100805
  18. CELLCEPT [Concomitant]
     Dosage: 1000 MG, UNK
     Route: 048
  19. PREDNISOLONE [Concomitant]
     Dosage: 20 MG, UNK
     Route: 048
  20. PREDNISOLONE [Concomitant]
     Dosage: 10 MG, UNK
     Route: 048
  21. OMEPRAZOLE [Concomitant]
     Indication: PROPHYLAXIS AGAINST GASTROINTESTINAL ULCER
     Dosage: 10 MG, UNK
     Route: 042
     Dates: start: 20100714, end: 20100715
  22. LANSOPRAZOLE [Concomitant]
     Indication: PROPHYLAXIS AGAINST GASTROINTESTINAL ULCER
     Dosage: 15 MG, UNK
     Route: 048
     Dates: start: 20100716, end: 20100727
  23. CELLCEPT [Concomitant]
     Indication: RENAL TRANSPLANT
     Dosage: 1000 MG, UNK
     Route: 048
     Dates: start: 20100716
  24. PREDNISOLONE [Concomitant]
     Dosage: 25 MG, UNK
     Route: 048
  25. LEVOTHYROXINE SODIUM [Concomitant]
     Dosage: 75 UG, UNK
     Route: 048
  26. PREDNISOLONE [Suspect]
     Indication: RENAL TRANSPLANT
     Dosage: 40 MG, UNK
     Route: 042
     Dates: start: 20100714, end: 20100716
  27. PENTAZOCINE LACTATE [Concomitant]
     Indication: PAIN
     Dosage: 45 MG, UNK
     Route: 042
     Dates: start: 20100717, end: 20100717
  28. SULFAMETHOXAZOLE [Concomitant]
     Indication: ANTIFUNGAL PROPHYLAXIS
     Dosage: 0.5 DF, UNK
     Route: 048
     Dates: start: 20100826, end: 20101030
  29. PROGRAF [Suspect]
     Indication: RENAL TRANSPLANT
     Dosage: 1.3 MG, UNK
     Route: 042
     Dates: start: 20100714, end: 20100716
  30. FLUID INFUSION [Suspect]
     Dosage: UNK
  31. PREDNISOLONE [Concomitant]
     Dosage: 15 MG, UNK
     Route: 048
  32. CEFAZOLIN [Concomitant]
     Dosage: 1800 MG, UNK
     Route: 042
  33. FLURBIPROFEN [Concomitant]
     Indication: PAIN
     Dosage: 50 MG, UNK
     Route: 042
     Dates: start: 20100716, end: 20100718

REACTIONS (2)
  - EPIPHYSIOLYSIS [None]
  - HYPERTENSION [None]
